FAERS Safety Report 8427438-X (Version None)
Quarter: 2012Q2

REPORT INFORMATION
  Report Type: 
  Country: None (occurrence: None)
  Receive Date: 20120611
  Receipt Date: 20120607
  Transmission Date: 20120825
  Serious: Yes (Other)
  Sender: FDA-Public Use
  Company Number: PHHY2011MX00923

PATIENT
  Sex: Female

DRUGS (5)
  1. ACETAMINOPHEN W/ CODEINE [Concomitant]
     Dosage: 1 DF, UNK
  2. BUDESONIDE [Concomitant]
     Dosage: 2 DF, QD
  3. SPIRIVA [Concomitant]
     Dosage: 1 DF, QD
  4. ONBREZ [Suspect]
     Indication: CHRONIC OBSTRUCTIVE PULMONARY DISEASE
     Dosage: 150 UG, QD
     Dates: start: 20101217
  5. METFORMIN HCL [Concomitant]
     Dosage: 2 DF, UNK
     Dates: start: 20120501

REACTIONS (2)
  - RESPIRATORY FAILURE [None]
  - COUGH [None]
